FAERS Safety Report 10208500 (Version 3)
Quarter: 2014Q4

REPORT INFORMATION
  Report Type: Spontaneous
  Country: JP (occurrence: JP)
  Receive Date: 20140530
  Receipt Date: 20141103
  Transmission Date: 20150528
  Serious: Yes (Life-Threatening, Hospitalization, Other)
  Sender: FDA-Public Use
  Company Number: JP-BRISTOL-MYERS SQUIBB COMPANY-20857652

PATIENT
  Age: 71 Year
  Sex: Male
  Weight: 43 kg

DRUGS (10)
  1. ERBITUX [Suspect]
     Active Substance: CETUXIMAB
     Indication: COLON CANCER
     Dosage: 375 MG
     Route: 041
     Dates: start: 20130327
  2. ZANTAC [Concomitant]
     Active Substance: RANITIDINE HYDROCHLORIDE
     Indication: RECTAL CANCER RECURRENT
  3. FOSAPREPITANT MEGLUMINE [Concomitant]
     Active Substance: FOSAPREPITANT
     Indication: RECTAL CANCER RECURRENT
  4. FLUOROURACIL. [Suspect]
     Active Substance: FLUOROURACIL
     Indication: RECTAL CANCER RECURRENT
     Dosage: 600 MG IV BOLUS:27MAR13-4JUN14(433 DAYS).
     Route: 041
     Dates: start: 20130327, end: 20140604
  5. CALCIUM FOLINATE [Concomitant]
     Active Substance: LEUCOVORIN CALCIUM
     Indication: RECTAL CANCER RECURRENT
  6. DEXART [Concomitant]
     Active Substance: DEXAMETHASONE SODIUM PHOSPHATE
     Indication: RECTAL CANCER RECURRENT
  7. SEROTONE [Concomitant]
     Active Substance: AZASETRON HYDROCHLORIDE
     Indication: RECTAL CANCER RECURRENT
  8. CAMPTO [Suspect]
     Active Substance: IRINOTECAN
     Indication: RECTAL CANCER RECURRENT
     Route: 041
     Dates: start: 20131016, end: 20140604
  9. ERBITUX [Suspect]
     Active Substance: CETUXIMAB
     Indication: RECTAL CANCER RECURRENT
     Dosage: 375 MG
     Route: 041
     Dates: start: 20130327
  10. POLARAMINE [Concomitant]
     Active Substance: DEXCHLORPHENIRAMINE MALEATE
     Indication: RECTAL CANCER RECURRENT

REACTIONS (4)
  - Hypomagnesaemia [Recovering/Resolving]
  - Electrocardiogram QT prolonged [Unknown]
  - Hypocalcaemia [Recovering/Resolving]
  - Decreased appetite [Recovering/Resolving]

NARRATIVE: CASE EVENT DATE: 20140423
